FAERS Safety Report 5417709-3 (Version None)
Quarter: 2007Q3

REPORT INFORMATION
  Report Type: 
  Country: None (occurrence: None)
  Receive Date: 20070815
  Receipt Date: 20070815
  Transmission Date: 20080115
  Serious: Yes (Hospitalization)
  Sender: FDA-Public Use
  Company Number: None

PATIENT
  Sex: Female

DRUGS (19)
  1. DIGOXIN [Suspect]
     Indication: ATRIAL FIBRILLATION
     Dosage: 0.125MG PO QD PRIOR TO ADMISSION
     Route: 048
  2. CARDIZEM [Concomitant]
  3. GLUCOPHAGE [Concomitant]
  4. ISORDIL [Concomitant]
  5. ADVAIR DISKUS 100/50 [Concomitant]
  6. LEVAQUIN [Concomitant]
  7. ARTIFICIAL TEARS [Concomitant]
  8. FOLIC ACID [Concomitant]
  9. LASIX [Concomitant]
  10. MIACALCIN [Concomitant]
  11. NORVASC [Concomitant]
  12. PRILOSEC [Concomitant]
  13. POTASSIUM CHLORIDE [Concomitant]
  14. LOPRESSOR [Concomitant]
  15. PLENDIL [Concomitant]
  16. MEVACOR [Concomitant]
  17. ATACAND [Concomitant]
  18. DITROPAN [Concomitant]
  19. FERROUS SULFATE TAB [Concomitant]

REACTIONS (3)
  - AGITATION [None]
  - BRADYCARDIA [None]
  - CONFUSIONAL STATE [None]
